FAERS Safety Report 4864876-6 (Version None)
Quarter: 2005Q4

REPORT INFORMATION
  Report Type: 
  Country: None (occurrence: None)
  Receive Date: 20051201
  Receipt Date: 20050811
  Transmission Date: 20060501
  Serious: No
  Sender: FDA-Public Use
  Company Number: 2005PV001096

PATIENT
  Age: 54 Year
  Sex: Female
  Weight: 100.2449 kg

DRUGS (15)
  1. BYETTA [Suspect]
     Indication: DIABETES MELLITUS NON-INSULIN-DEPENDENT
     Dosage: 10 MCG; BID; SC; 5 MCG; SC
     Route: 058
     Dates: start: 20050803
  2. AVANDIA [Concomitant]
  3. METFORMIN [Concomitant]
  4. GLYBURIDE [Concomitant]
  5. AVANDAMET [Concomitant]
  6. MONOPRIL [Concomitant]
  7. FLUOXETINE [Concomitant]
  8. HYDROCHLOROTHIAZIDE [Concomitant]
  9. ASPIRIN [Concomitant]
  10. LESCOL [Concomitant]
  11. CENTRUM SILVER [Concomitant]
  12. ASCORBIC ACID [Concomitant]
  13. VITAMIN B6 [Concomitant]
  14. GARLIC [Concomitant]
  15. FISH OIL [Concomitant]

REACTIONS (4)
  - BLOOD GLUCOSE INCREASED [None]
  - MALAISE [None]
  - NAUSEA [None]
  - VOMITING [None]
